FAERS Safety Report 4788785-6 (Version None)
Quarter: 2005Q4

REPORT INFORMATION
  Report Type: 
  Country: None (occurrence: None)
  Receive Date: 20051004
  Receipt Date: 20050927
  Transmission Date: 20060501
  Serious: Yes (Hospitalization, Other)
  Sender: FDA-Public Use
  Company Number: FRWYE309629DEC04

PATIENT
  Age: 37 Year
  Sex: Female

DRUGS (3)
  1. SIROLIMUS (SIROLIMUS, TABLET, 0) [Suspect]
     Indication: PROPHYLAXIS AGAINST TRANSPLANT REJECTION
     Dosage: 5 MG 1X PER 1 DAY, ORAL
     Route: 048
     Dates: start: 20041216
  2. CELLCEPT (MYCOPHENOLATE MFOETIL, 0 ) [Suspect]
     Indication: PROPHYLAXIS AGAINST TRANSPLANT REJECTION
     Dosage: 1000 MG 2X PER 1 DAY, ORAL
     Route: 048
  3. ZENEPAX (DACLIZUMAB, 0) [Suspect]
     Dosage: INTRAVENOUS
     Route: 042

REACTIONS (5)
  - COMPLICATIONS OF TRANSPLANTED KIDNEY [None]
  - DRUG INEFFECTIVE [None]
  - GLOMERULONEPHRITIS MEMBRANOUS [None]
  - IMMUNOSUPPRESSANT DRUG LEVEL DECREASED [None]
  - KIDNEY TRANSPLANT REJECTION [None]
